FAERS Safety Report 22948446 (Version 2)
Quarter: 2023Q4

REPORT INFORMATION
  Report Type: Spontaneous
  Country: US (occurrence: US)
  Receive Date: 20230915
  Receipt Date: 20231006
  Transmission Date: 20240109
  Serious: Yes (Hospitalization)
  Sender: FDA-Public Use
  Company Number: US-TEVA-2023-US-2925157

PATIENT
  Age: 79 Year
  Sex: Female
  Weight: 63.5 kg

DRUGS (1)
  1. AJOVY [Suspect]
     Active Substance: FREMANEZUMAB-VFRM
     Indication: Migraine
     Dosage: 225 MG / 1.5 ML,ONCE A MONTH?DOSE: 150 MG/ML
     Route: 065
     Dates: start: 2020

REACTIONS (11)
  - Chest pain [Unknown]
  - Speech disorder [Unknown]
  - Discomfort [Unknown]
  - Pneumonia [Unknown]
  - Locked-in syndrome [Unknown]
  - Dementia [Unknown]
  - Urinary tract infection [Unknown]
  - Migraine [Unknown]
  - Infection [Unknown]
  - Mobility decreased [Unknown]
  - Product dose omission issue [Unknown]

NARRATIVE: CASE EVENT DATE: 20210101
